FAERS Safety Report 10139563 (Version 2)
Quarter: 2014Q2

REPORT INFORMATION
  Report Type: Spontaneous
  Country: None (occurrence: GB)
  Receive Date: 20140429
  Receipt Date: 20140604
  Transmission Date: 20141212
  Serious: Yes (Life-Threatening, Hospitalization)
  Sender: FDA-Public Use
  Company Number: GB-WATSON-2014-08402

PATIENT
  Age: 35 Year
  Sex: Female
  Weight: 62 kg

DRUGS (7)
  1. OXALIPLATIN FRESENIUS KABI [Suspect]
     Indication: CHEMOTHERAPY
     Dosage: 220 MG, SINGLE - 220 MG COMPOUNDED WITH 5% GLUCOSE AND DISCOUNTINUED AFTER 4 MINUTES OF THE INFUSION
     Route: 042
     Dates: start: 20140213, end: 20140213
  2. GLUCOSE BAXTER [Suspect]
     Indication: MEDICATION DILUTION
     Dosage: 544 ML, UNK; 544 ML INFUSION DISCONTINUED AFTER 4 MINUTES
     Route: 042
     Dates: start: 20140213, end: 20140213
  3. DEXAMETHASONE [Concomitant]
     Indication: ANTIEMETIC SUPPORTIVE CARE
     Dosage: 8 MG, SINGLE
     Route: 048
     Dates: start: 20140213
  4. DEXAMETHASONE [Concomitant]
     Indication: PREMEDICATION
  5. ONDANSETRON [Concomitant]
     Indication: ANTIEMETIC SUPPORTIVE CARE
     Dosage: 8 MG, SINGLE
     Route: 042
     Dates: start: 20140213
  6. ONDANSETRON [Concomitant]
     Indication: PREMEDICATION
  7. XELOX [Concomitant]
     Indication: PRODUCT USED FOR UNKNOWN INDICATION
     Dosage: UNK
     Route: 065

REACTIONS (5)
  - Anaphylactic reaction [Recovered/Resolved]
  - Hypotension [Recovered/Resolved]
  - Tachycardia [Recovered/Resolved]
  - Flushing [Recovered/Resolved]
  - Paraesthesia [Recovered/Resolved]
